FAERS Safety Report 17790435 (Version 5)
Quarter: 2022Q1

REPORT INFORMATION
  Report Type: Report from Study
  Country: CA (occurrence: CA)
  Receive Date: 20200515
  Receipt Date: 20220202
  Transmission Date: 20220424
  Serious: Yes (Other)
  Sender: FDA-Public Use
  Company Number: NVSC2019CA010781

PATIENT
  Sex: Female

DRUGS (4)
  1. COSENTYX [Suspect]
     Active Substance: SECUKINUMAB
     Indication: Ankylosing spondylitis
     Dosage: 150 MG, QW (WEEKS 0, 1, 2 AND 3) (SENSOREADY PEN) (BATCH NUMBER: NOT REPORTED)
     Route: 058
     Dates: start: 20191009
  2. COSENTYX [Suspect]
     Active Substance: SECUKINUMAB
     Dosage: 150 MG, QMO
     Route: 058
  3. COSENTYX [Suspect]
     Active Substance: SECUKINUMAB
     Dosage: 300 MG, Q4W
     Route: 058
     Dates: start: 20211224
  4. CYMBALTA [Concomitant]
     Active Substance: DULOXETINE HYDROCHLORIDE
     Indication: Product used for unknown indication
     Dosage: UNK
     Route: 065
     Dates: start: 2018, end: 2019

REACTIONS (11)
  - Ventricular tachycardia [Unknown]
  - Anxiety [Unknown]
  - Headache [Unknown]
  - Pain [Unknown]
  - Sacral pain [Unknown]
  - Muscle spasms [Unknown]
  - Stress [Unknown]
  - Influenza [Unknown]
  - Pyrexia [Recovered/Resolved]
  - Cough [Unknown]
  - Therapeutic response decreased [Unknown]

NARRATIVE: CASE EVENT DATE: 20190101
